FAERS Safety Report 4791302-8 (Version None)
Quarter: 2005Q4

REPORT INFORMATION
  Report Type: 
  Country: None (occurrence: None)
  Receive Date: 20051007
  Receipt Date: 20030310
  Transmission Date: 20060501
  Serious: Yes (Hospitalization)
  Sender: FDA-Public Use
  Company Number: PHHO2003JP03366

PATIENT
  Age: 74 Year
  Sex: Female
  Weight: 40 kg

DRUGS (6)
  1. LOCHOL [Suspect]
     Indication: HYPERCHOLESTEROLAEMIA
     Dosage: 20MG/DAY
     Route: 048
     Dates: start: 20010615
  2. GLIMICRON [Concomitant]
     Dosage: 40 MG/DAY
     Route: 048
     Dates: start: 20010328, end: 20010906
  3. EUGLUCON [Concomitant]
     Indication: DIABETES MELLITUS
     Dosage: 5 MG/DAY
     Route: 048
     Dates: start: 20010907, end: 20011206
  4. INSULIN [Concomitant]
     Indication: DIABETES MELLITUS
     Dates: start: 20011207
  5. ANPLAG [Concomitant]
     Dosage: 300 MG/DAY
     Route: 048
     Dates: start: 20010725
  6. CYANOCOBALAMIN [Concomitant]
     Indication: NERVE INJURY
     Dosage: 1.5 MG/DAY
     Route: 065
     Dates: start: 20011214

REACTIONS (1)
  - DIABETES MELLITUS [None]
